FAERS Safety Report 18739438 (Version 1)
Quarter: 2021Q1

REPORT INFORMATION
  Report Type: Spontaneous
  Country: US (occurrence: US)
  Receive Date: 20210113
  Receipt Date: 20210113
  Transmission Date: 20210419
  Serious: No
  Sender: FDA-Public Use
  Company Number: None

PATIENT
  Age: 62 Year
  Sex: Male

DRUGS (1)
  1. TACROLIMUS (STRIDES) 1MG STRIDES PHARMA [Suspect]
     Active Substance: TACROLIMUS
     Indication: HEPATOCELLULAR CARCINOMA
     Route: 048
     Dates: start: 202005

REACTIONS (1)
  - Hospice care [None]

NARRATIVE: CASE EVENT DATE: 202012
